FAERS Safety Report 16995097 (Version 4)
Quarter: 2021Q1

REPORT INFORMATION
  Report Type: Spontaneous
  Country: US (occurrence: US)
  Receive Date: 20191105
  Receipt Date: 20210115
  Transmission Date: 20210419
  Serious: No
  Sender: FDA-Public Use
  Company Number: US-PFIZER INC-2019474031

PATIENT
  Age: 78 Year
  Sex: Female

DRUGS (1)
  1. BOSULIF [Suspect]
     Active Substance: BOSUTINIB MONOHYDRATE
     Indication: LEUKAEMIA
     Dosage: 100 MG, UNK

REACTIONS (2)
  - Intentional product use issue [Unknown]
  - Muscular weakness [Not Recovered/Not Resolved]
